FAERS Safety Report 4349993-1 (Version None)
Quarter: 2004Q2

REPORT INFORMATION
  Report Type: 
  Country: None (occurrence: None)
  Receive Date: 20040426
  Receipt Date: 20040414
  Transmission Date: 20050107
  Serious: Yes (Life-Threatening)
  Sender: FDA-Public Use
  Company Number: 2004-01596

PATIENT
  Age: 35 Year
  Sex: Male
  Weight: 77.1 kg

DRUGS (4)
  1. PREDNISONE [Suspect]
     Indication: ANGIONEUROTIC OEDEMA
     Dosage: 60 MG, THEN TAPER, ORAL
     Route: 048
     Dates: start: 20040314, end: 20040414
  2. SINGULAIR [Concomitant]
  3. RANITIDINE [Concomitant]
  4. HYDROXYCHLOROQUINE SULFATE [Concomitant]

REACTIONS (3)
  - ANGIONEUROTIC OEDEMA [None]
  - DRUG INEFFECTIVE [None]
  - HYPERSENSITIVITY [None]
